FAERS Safety Report 5280068-3 (Version None)
Quarter: 2007Q1

REPORT INFORMATION
  Report Type: 
  Country: None (occurrence: None)
  Receive Date: 20061229
  Receipt Date: 20061023
  Transmission Date: 20070707
  Serious: Yes (Other)
  Sender: FDA-Public Use
  Company Number: 2006UW20379

PATIENT
  Age: 81 Year
  Sex: Female
  Weight: 66.224 kg

DRUGS (8)
  1. CRESTOR [Suspect]
     Indication: BLOOD CHOLESTEROL INCREASED
     Dosage: 2.5 MG DAILY PO
     Route: 048
     Dates: start: 20061001
  2. TOPROL-XL [Concomitant]
  3. NORVASC [Concomitant]
  4. DIGOXIN [Concomitant]
  5. ALDACTONE [Concomitant]
  6. COUMADIN [Concomitant]
  7. VITAMIN B-12 [Concomitant]
  8. CALCIUM [Concomitant]

REACTIONS (1)
  - GINGIVAL PAIN [None]
